FAERS Safety Report 15689685 (Version 1)
Quarter: 2018Q4

REPORT INFORMATION
  Report Type: Spontaneous
  Country: US (occurrence: US)
  Receive Date: 20181205
  Receipt Date: 20181205
  Transmission Date: 20190205
  Serious: No
  Sender: FDA-Public Use
  Company Number: US-NOVOPROD-604734

PATIENT
  Age: 54 Year
  Sex: Male
  Weight: 98.9 kg

DRUGS (1)
  1. NOVOLIN R [Suspect]
     Active Substance: INSULIN HUMAN
     Indication: DIABETES MELLITUS
     Dosage: 10 UNITS BEFORE BREAKFAST AND LUNCH, 14 UNITS BEFORE DINNER
     Route: 058
     Dates: start: 2016, end: 2018

REACTIONS (2)
  - Blister [Not Recovered/Not Resolved]
  - Hypoaesthesia [Not Recovered/Not Resolved]

NARRATIVE: CASE EVENT DATE: 2016
